FAERS Safety Report 6357918-2 (Version None)
Quarter: 2009Q3

REPORT INFORMATION
  Report Type: 
  Country: None (occurrence: None)
  Receive Date: 20090916
  Receipt Date: 20090914
  Transmission Date: 20100115
  Serious: Yes (Hospitalization, Other)
  Sender: FDA-Public Use
  Company Number: A0798699A

PATIENT
  Age: 38 Year
  Sex: Female
  Weight: 104.5 kg

DRUGS (9)
  1. ALLI [Suspect]
     Indication: DRUG USE FOR UNKNOWN INDICATION
     Route: 048
     Dates: start: 20090301, end: 20090701
  2. EFFEXOR [Concomitant]
     Dosage: 75MG PER DAY
     Route: 048
  3. COZAAR [Concomitant]
     Dosage: 50MG PER DAY
     Route: 048
  4. KLONOPIN [Concomitant]
     Dosage: .5MG AS REQUIRED
     Route: 048
  5. METFORMIN HCL [Concomitant]
     Dosage: 1G TWICE PER DAY
     Route: 048
  6. ETHINYL ESTRADIOL + ETHYNODIOL DIACETATE [Concomitant]
     Route: 048
  7. WELLBUTRIN [Concomitant]
     Dosage: 150MG PER DAY
     Route: 048
  8. VITAMIN [Concomitant]
     Dosage: 1TAB PER DAY
     Route: 048
  9. CALCIUM [Concomitant]
     Route: 048

REACTIONS (4)
  - CHOLECYSTECTOMY [None]
  - CHOLECYSTITIS [None]
  - LIPASE INCREASED [None]
  - PANCREATITIS [None]
